FAERS Safety Report 8125936-X (Version None)
Quarter: 2012Q1

REPORT INFORMATION
  Report Type: 
  Country: None (occurrence: None)
  Receive Date: 20120209
  Receipt Date: 20120131
  Transmission Date: 20120608
  Serious: Yes (Other)
  Sender: FDA-Public Use
  Company Number: US-ROCHE-803027

PATIENT
  Sex: Male
  Weight: 94.886 kg

DRUGS (2)
  1. ACCUTANE [Suspect]
     Indication: ACNE
     Route: 065
  2. ACETAMINOPHEN [Concomitant]

REACTIONS (2)
  - HAEMORRHOIDS [None]
  - COLITIS ULCERATIVE [None]
